FAERS Safety Report 4816871-0 (Version None)
Quarter: 2005Q4

REPORT INFORMATION
  Report Type: 
  Country: None (occurrence: None)
  Receive Date: 20051031
  Receipt Date: 20051031
  Transmission Date: 20060501
  Serious: Yes (Hospitalization)
  Sender: FDA-Public Use
  Company Number: None

PATIENT
  Age: 67 Year
  Sex: Male

DRUGS (10)
  1. MAXZIDE [Suspect]
     Indication: HYPERTENSION
     Dosage: 1 TAB QP
     Dates: start: 19991201
  2. MEDROL [Concomitant]
  3. ALLOPURINOL [Concomitant]
  4. DIGOXIN [Concomitant]
  5. DSS [Concomitant]
  6. FINASTERIDE [Concomitant]
  7. LISINOPRIL [Concomitant]
  8. METOPROLOL [Concomitant]
  9. ZOCOR [Concomitant]
  10. TAMSULOSIN [Concomitant]

REACTIONS (1)
  - UNEVALUABLE EVENT [None]
